FAERS Safety Report 12560878 (Version 1)
Quarter: 2016Q3

REPORT INFORMATION
  Report Type: Other
  Country: None (occurrence: ES)
  Receive Date: 20160715
  Receipt Date: 20160715
  Transmission Date: 20161109
  Serious: Yes (Hospitalization, Other)
  Sender: FDA-Public Use
  Company Number: ES-MERCK KGAA-1055087

PATIENT

DRUGS (1)
  1. NOVOTHYROX [Suspect]
     Active Substance: LEVOTHYROXINE SODIUM

REACTIONS (6)
  - Varicella zoster virus infection [None]
  - Live birth [None]
  - Intrapartum haemorrhage [None]
  - Plasma cell myeloma [None]
  - Complication of pregnancy [None]
  - Maternal exposure during pregnancy [None]
